FAERS Safety Report 7036148-5 (Version None)
Quarter: 2010Q4

REPORT INFORMATION
  Report Type: 
  Country: None (occurrence: None)
  Receive Date: 20101008
  Receipt Date: 20100721
  Transmission Date: 20110411
  Serious: No
  Sender: FDA-Public Use
  Company Number: US-BRISTOL-MYERS SQUIBB COMPANY-15039688

PATIENT
  Age: 73 Year
  Sex: Female
  Weight: 63 kg

DRUGS (2)
  1. AVAPRO [Suspect]
     Indication: HYPERTENSION
     Dosage: CUMULATIVE 300MG
     Route: 048
     Dates: start: 20100323, end: 20100324
  2. SYNTHROID [Concomitant]
     Route: 048
     Dates: start: 20100101

REACTIONS (2)
  - MALAISE [None]
  - MYALGIA [None]
